FAERS Safety Report 16476197 (Version 4)
Quarter: 2019Q3

REPORT INFORMATION
  Report Type: Spontaneous
  Country: CA (occurrence: CA)
  Receive Date: 20190626
  Receipt Date: 20190901
  Transmission Date: 20191004
  Serious: Yes (Other)
  Sender: FDA-Public Use
  Company Number: CA-CELLTRION INC.-2018CA018549

PATIENT

DRUGS (16)
  1. INFLECTRA [Suspect]
     Active Substance: INFLIXIMAB-DYYB
     Dosage: 410 MG, EVERY 0, 2, 6 WEEKS, THEN EVERY 8 WEEKS
     Route: 042
     Dates: start: 20181210, end: 20181210
  2. IMURAN [Concomitant]
     Active Substance: AZATHIOPRINE
     Dosage: 50 MG, DAILY
     Route: 048
     Dates: start: 2007
  3. INFLECTRA [Suspect]
     Active Substance: INFLIXIMAB-DYYB
     Dosage: 410 MG, (EVERY 0, 2, 6 WEEKS, THEN EVERY 8 WEEKS)
     Route: 042
     Dates: start: 20180309, end: 20180309
  4. INFLECTRA [Suspect]
     Active Substance: INFLIXIMAB-DYYB
     Dosage: 410 MG, EVERY 0, 2, 6 WEEKS, THEN EVERY 8 WEEKS
     Route: 042
     Dates: start: 20190206, end: 20190206
  5. INFLECTRA [Suspect]
     Active Substance: INFLIXIMAB-DYYB
     Dosage: 410 MG, (EVERY 0, 2, 6 WEEKS, THEN EVERY 8 WEEKS)
     Route: 042
     Dates: start: 20180206, end: 20180206
  6. INFLECTRA [Suspect]
     Active Substance: INFLIXIMAB-DYYB
     Dosage: 425 MG, EVERY 6 WEEKS
     Route: 042
     Dates: start: 20190820
  7. HUMIRA [Concomitant]
     Active Substance: ADALIMUMAB
     Dosage: 40 MG, WEEKLY
     Route: 058
     Dates: start: 201508
  8. HYDROCORTISONE. [Concomitant]
     Active Substance: HYDROCORTISONE
     Dosage: 200 MG, UNK
     Dates: start: 20190820, end: 20190820
  9. INFLECTRA [Suspect]
     Active Substance: INFLIXIMAB-DYYB
     Dosage: 410 MG, (EVERY 0, 2, 6 WEEKS, THEN EVERY 8 WEEKS)
     Route: 042
     Dates: start: 20180504, end: 20180504
  10. INFLECTRA [Suspect]
     Active Substance: INFLIXIMAB-DYYB
     Dosage: 410 MG, EVERY 0, 2, 6 WEEKS, THEN EVERY 8 WEEKS
     Route: 042
     Dates: start: 20190404, end: 20190404
  11. INFLECTRA [Suspect]
     Active Substance: INFLIXIMAB-DYYB
     Dosage: 420 MG, EVERY 8 WEEKS
     Route: 042
     Dates: start: 20190530
  12. TECTA [Concomitant]
     Active Substance: PANTOPRAZOLE MAGNESIUM
     Dosage: 40 MG, DAILY
     Route: 048
  13. INFLECTRA [Suspect]
     Active Substance: INFLIXIMAB-DYYB
     Indication: CROHN^S DISEASE
     Dosage: 410 MG,  (EVERY 0, 2, 6 WEEKS, THEN EVERY 8 WEEKS)
     Route: 042
     Dates: start: 20180123, end: 20180123
  14. INFLECTRA [Suspect]
     Active Substance: INFLIXIMAB-DYYB
     Dosage: 410 MG, EVERY 0, 2, 6 WEEKS, THEN EVERY 8 WEEKS
     Route: 042
     Dates: start: 20180822, end: 20180822
  15. INFLECTRA [Suspect]
     Active Substance: INFLIXIMAB-DYYB
     Dosage: 425 MG, EVERY 6 WEEKS
     Route: 042
     Dates: start: 20190709
  16. INFLECTRA [Suspect]
     Active Substance: INFLIXIMAB-DYYB
     Dosage: 410 MG, EVERY 0, 2, 6 WEEKS, THEN EVERY 8 WEEKS
     Route: 042
     Dates: start: 20181015, end: 20181015

REACTIONS (21)
  - Condition aggravated [Not Recovered/Not Resolved]
  - Cough [Unknown]
  - Viral infection [Unknown]
  - Iron deficiency [Unknown]
  - Blood pressure fluctuation [Unknown]
  - Diarrhoea [Unknown]
  - Arthritis [Unknown]
  - Sunburn [Unknown]
  - Influenza [Unknown]
  - Uveitis [Not Recovered/Not Resolved]
  - Drug level decreased [Unknown]
  - Infection [Unknown]
  - Arthralgia [Not Recovered/Not Resolved]
  - Abdominal distension [Recovered/Resolved]
  - Nausea [Unknown]
  - Poor quality sleep [Unknown]
  - Intentional product use issue [Unknown]
  - Respiratory tract congestion [Unknown]
  - Body temperature increased [Recovering/Resolving]
  - Joint swelling [Unknown]
  - Off label use [Unknown]

NARRATIVE: CASE EVENT DATE: 20180502
